FAERS Safety Report 17134898 (Version 3)
Quarter: 2019Q4

REPORT INFORMATION
  Report Type: Spontaneous
  Country: IT (occurrence: IT)
  Receive Date: 20191210
  Receipt Date: 20191226
  Transmission Date: 20200122
  Serious: Yes (Hospitalization, Other)
  Sender: FDA-Public Use
  Company Number: IT-PFIZER INC-2019533333

PATIENT
  Age: 94 Year
  Sex: Female

DRUGS (7)
  1. IPRAXA [Concomitant]
     Dosage: UNK, UNK
  2. LASIX [Concomitant]
     Active Substance: FUROSEMIDE
     Dosage: UNK, UNK
  3. RAMIPRIL. [Suspect]
     Active Substance: RAMIPRIL
     Dosage: 10 MG, QD
     Route: 048
     Dates: start: 20190101, end: 20191028
  4. BISOPROLOL HEMIFUMARATE [Suspect]
     Active Substance: BISOPROLOL FUMARATE
     Indication: HYPERTENSION
     Dosage: 1.25 MG, QD
     Route: 048
     Dates: start: 20190101, end: 20191028
  5. ALOPERIDOLO [Concomitant]
     Active Substance: HALOPERIDOL
     Dosage: UNK, UNK
  6. NORVASC [Suspect]
     Active Substance: AMLODIPINE BESYLATE
     Dosage: UNK
     Route: 048
     Dates: start: 20190101, end: 20191028
  7. LIXIANA [Concomitant]
     Active Substance: EDOXABAN TOSYLATE
     Dosage: UNK

REACTIONS (3)
  - Hypotension [Unknown]
  - Trifascicular block [Unknown]
  - Bradycardia [Unknown]

NARRATIVE: CASE EVENT DATE: 20191028
